FAERS Safety Report 13759496 (Version 5)
Quarter: 2018Q1

REPORT INFORMATION
  Report Type: Report from Study
  Country: US (occurrence: US)
  Receive Date: 20170717
  Receipt Date: 20180307
  Transmission Date: 20180508
  Serious: Yes (Other)
  Sender: FDA-Public Use
  Company Number: US-SA-2017SA125978

PATIENT
  Age: 35 Year
  Sex: Female

DRUGS (2)
  1. LEMTRADA [Suspect]
     Active Substance: ALEMTUZUMAB
     Indication: MULTIPLE SCLEROSIS
     Route: 041
     Dates: start: 20170619, end: 20170623
  2. PLAVIX [Suspect]
     Active Substance: CLOPIDOGREL BISULFATE
     Route: 065
     Dates: end: 20170620

REACTIONS (16)
  - Rash erythematous [Not Recovered/Not Resolved]
  - Laryngitis [Unknown]
  - Immune system disorder [Not Recovered/Not Resolved]
  - Pruritus generalised [Not Recovered/Not Resolved]
  - Pruritus generalised [Recovering/Resolving]
  - White blood cells urine positive [Not Recovered/Not Resolved]
  - Haematochezia [Recovered/Resolved]
  - Alopecia [Not Recovered/Not Resolved]
  - Purpura [Unknown]
  - Epistaxis [Recovered/Resolved]
  - Laboratory test abnormal [Not Recovered/Not Resolved]
  - Ecchymosis [Unknown]
  - Contusion [Not Recovered/Not Resolved]
  - Coagulopathy [Recovered/Resolved]
  - Dysphonia [Unknown]
  - Pigmentation disorder [Recovered/Resolved]

NARRATIVE: CASE EVENT DATE: 2017
